FAERS Safety Report 9281097 (Version 2)
Quarter: 2014Q1

REPORT INFORMATION
  Report Type: Spontaneous
  Country: US (occurrence: US)
  Receive Date: 20130509
  Receipt Date: 20140320
  Transmission Date: 20141002
  Serious: Yes (Other)
  Sender: FDA-Public Use
  Company Number: US-THROMBOGENICS NV-JET-2013-073

PATIENT
  Sex: Female

DRUGS (1)
  1. JETREA [Suspect]
     Indication: PRODUCT USED FOR UNKNOWN INDICATION
     Dosage: 0.125 MG, ONE TIME DOSE
     Route: 031
     Dates: start: 201303, end: 201303

REACTIONS (4)
  - Retinal oedema [Unknown]
  - Iris adhesions [Unknown]
  - Iridocyclitis [Unknown]
  - Visual impairment [Unknown]
